FAERS Safety Report 25063660 (Version 6)
Quarter: 2025Q4

REPORT INFORMATION
  Report Type: Report from Study
  Country: US (occurrence: None)
  Receive Date: 20250311
  Receipt Date: 20251205
  Transmission Date: 20260118
  Serious: Yes (Other)
  Sender: UCB
  Company Number: US-UCBSA-2025013238

PATIENT
  Weight: 76.7 kg

DRUGS (6)
  1. FENFLURAMINE [Suspect]
     Active Substance: FENFLURAMINE
     Indication: Lennox-Gastaut syndrome
     Dosage: 5.5 MILLILITER, 2X/DAY (BID)
  2. FENFLURAMINE [Suspect]
     Active Substance: FENFLURAMINE
     Dosage: 5.5 MILLILITER, 2X/DAY (BID)
  3. FENFLURAMINE [Suspect]
     Active Substance: FENFLURAMINE
     Dosage: 5.5 MILLILITER, 2X/DAY (BID)
  4. KEPPRA [Concomitant]
     Active Substance: LEVETIRACETAM
     Indication: Seizure
     Dosage: 2000 MILLIGRAM, 2X/DAY (BID)
  5. VIMPAT [Concomitant]
     Active Substance: LACOSAMIDE
     Indication: Seizure
     Dosage: 200 MILLIGRAM, 2X/DAY (BID)
  6. ONFI [Concomitant]
     Active Substance: CLOBAZAM
     Indication: Seizure
     Dosage: TWICE A DAY 15 MILLIGRAMS IN MORNING AND 20 MILLIGRAMS AT NIGHT

REACTIONS (9)
  - Seizure [Not Recovered/Not Resolved]
  - Choking [Unknown]
  - Medical device battery replacement [Unknown]
  - Atonic seizures [Not Recovered/Not Resolved]
  - Mood swings [Not Recovered/Not Resolved]
  - Aggression [Not Recovered/Not Resolved]
  - Weight decreased [Unknown]
  - Fall [Unknown]
  - Contusion [Unknown]
